FAERS Safety Report 9265723 (Version 2)
Quarter: 2013Q2

REPORT INFORMATION
  Report Type: Report from Study
  Country: JP (occurrence: JP)
  Receive Date: 20130501
  Receipt Date: 20130501
  Transmission Date: 20140414
  Serious: Yes (Other)
  Sender: FDA-Public Use
  Company Number: JP-BAXTER-2013BAX013294

PATIENT
  Age: 2 Year
  Sex: Male
  Weight: 13.06 kg

DRUGS (1)
  1. ADVATE 500 IE [Suspect]
     Indication: HAEMOSTASIS
     Dosage: ON-DEMAND THERAPY
     Route: 042
     Dates: start: 20110625, end: 20110925

REACTIONS (2)
  - Factor VIII inhibition [Recovered/Resolved]
  - Condition aggravated [Recovered/Resolved]
